FAERS Safety Report 7019855-X (Version None)
Quarter: 2010Q3

REPORT INFORMATION
  Report Type: 
  Country: None (occurrence: None)
  Receive Date: 20100923
  Receipt Date: 20100909
  Transmission Date: 20110219
  Serious: Yes (Hospitalization)
  Sender: FDA-Public Use
  Company Number: 018527

PATIENT
  Sex: Male
  Weight: 178 kg

DRUGS (1)
  1. CIMZIA [Suspect]
     Indication: CROHN'S DISEASE
     Dosage: 200 MG 1X/2 WEEKS SUBCUTANEOUS
     Route: 058
     Dates: start: 20100902

REACTIONS (4)
  - CONFUSIONAL STATE [None]
  - EYE PAIN [None]
  - HEADACHE [None]
  - HERPES ZOSTER [None]
